FAERS Safety Report 7425483-4 (Version None)
Quarter: 2011Q2

REPORT INFORMATION
  Report Type: 
  Country: None (occurrence: None)
  Receive Date: 20110420
  Receipt Date: 20110416
  Transmission Date: 20111010
  Serious: Yes (Other)
  Sender: FDA-Public Use
  Company Number: CH-PFIZER INC-2011084915

PATIENT
  Sex: Male

DRUGS (2)
  1. NEURONTIN [Suspect]
     Dosage: 100 MG, UNK
  2. ASPIRIN [Suspect]
     Dosage: 100 MG, UNK

REACTIONS (6)
  - ABNORMAL BEHAVIOUR [None]
  - BURNING SENSATION [None]
  - TREMOR [None]
  - PARAESTHESIA [None]
  - QUALITY OF LIFE DECREASED [None]
  - INSOMNIA [None]
